FAERS Safety Report 8586921-7 (Version None)
Quarter: 2012Q3

REPORT INFORMATION
  Report Type: 
  Country: None (occurrence: None)
  Receive Date: 20120810
  Receipt Date: 20120801
  Transmission Date: 20120928
  Serious: Yes (Other)
  Sender: FDA-Public Use
  Company Number: CHPA2012CA017378

PATIENT
  Sex: Female

DRUGS (1)
  1. NODOZ [Suspect]
     Indication: SOMNOLENCE
     Dosage: 1/3 TO 1/2 OF A TABLET, ONCE EVERY 1 OR 2 WEEKS
     Route: 048

REACTIONS (4)
  - UNDERDOSE [None]
  - HEAD INJURY [None]
  - FIBROMYALGIA [None]
  - EXPIRED DRUG ADMINISTERED [None]
